FAERS Safety Report 6906244-9 (Version None)
Quarter: 2010Q3

REPORT INFORMATION
  Report Type: 
  Country: None (occurrence: None)
  Receive Date: 20100803
  Receipt Date: 20100803
  Transmission Date: 20110219
  Serious: Yes (Other)
  Sender: FDA-Public Use
  Company Number: None

PATIENT
  Age: 68 Year
  Sex: Male
  Weight: 97.5234 kg

DRUGS (1)
  1. LOVASTATIN [Suspect]
     Indication: BLOOD CHOLESTEROL ABNORMAL
     Dosage: ONE TABLET DAILY PO
     Route: 048
     Dates: start: 20100615, end: 20100726

REACTIONS (9)
  - ARTHRALGIA [None]
  - DECREASED APPETITE [None]
  - FATIGUE [None]
  - GAIT DISTURBANCE [None]
  - INSOMNIA [None]
  - MUSCULOSKELETAL DISCOMFORT [None]
  - OEDEMA PERIPHERAL [None]
  - PRODUCT LABEL ISSUE [None]
  - PRODUCT SUBSTITUTION ISSUE [None]
